FAERS Safety Report 16782580 (Version 1)
Quarter: 2019Q3

REPORT INFORMATION
  Report Type: Spontaneous
  Country: SE (occurrence: SE)
  Receive Date: 20190906
  Receipt Date: 20190906
  Transmission Date: 20191005
  Serious: Yes (Hospitalization)
  Sender: FDA-Public Use
  Company Number: SE-009507513-1909SWE000349

PATIENT
  Age: 18 Year
  Sex: Male

DRUGS (3)
  1. LERGIGAN (PROMETHAZINE HYDROCHLORIDE) [Suspect]
     Active Substance: PROMETHAZINE HYDROCHLORIDE
     Dosage: 200 MILLIGRAM, ^TOTAL^
     Route: 048
     Dates: start: 20190505, end: 20190505
  2. DESLORATADINE. [Suspect]
     Active Substance: DESLORATADINE
     Dosage: 60 MILLIGRAM, ^TOTAL^
     Route: 048
     Dates: start: 20190505, end: 20190505
  3. ESCITALOPRAM [Suspect]
     Active Substance: ESCITALOPRAM OXALATE
     Dosage: 140 MILLIGRAM, ^TOTAL^
     Route: 048
     Dates: start: 20190505, end: 20190505

REACTIONS (2)
  - Intentional overdose [Unknown]
  - Intentional self-injury [Unknown]

NARRATIVE: CASE EVENT DATE: 201905
